FAERS Safety Report 7402048-1 (Version None)
Quarter: 2011Q2

REPORT INFORMATION
  Report Type: 
  Country: None (occurrence: None)
  Receive Date: 20110408
  Receipt Date: 20110408
  Transmission Date: 20111010
  Serious: Yes (Death)
  Sender: FDA-Public Use
  Company Number: None

PATIENT
  Sex: Male
  Weight: 65.7716 kg

DRUGS (1)
  1. ALCOHOL PREP PADS 70% VERSPRO [Suspect]
     Indication: INFECTION PROPHYLAXIS
     Dates: start: 20110112, end: 20110120

REACTIONS (3)
  - PNEUMONIA [None]
  - PRODUCT CONTAMINATION [None]
  - DEVICE RELATED INFECTION [None]
